FAERS Safety Report 9257201 (Version 1)
Quarter: 2013Q2

REPORT INFORMATION
  Report Type: Spontaneous
  Country: ES (occurrence: ES)
  Receive Date: 20130426
  Receipt Date: 20130426
  Transmission Date: 20140414
  Serious: Yes (Hospitalization)
  Sender: FDA-Public Use
  Company Number: PHHY2013ES039242

PATIENT
  Age: 49 Year
  Sex: Male

DRUGS (3)
  1. GLIVEC [Suspect]
     Indication: CHRONIC MYELOID LEUKAEMIA
     Dosage: 400 MG, DAILY
     Route: 048
     Dates: start: 2008
  2. DICLOFENAC POTASSIUM [Suspect]
     Dosage: 75 MG, UNK
     Route: 030
     Dates: start: 20130402, end: 20130404
  3. NAPROXEN [Suspect]
     Dosage: UNK UKN, UNK
     Route: 048
     Dates: start: 20130404, end: 20130404

REACTIONS (3)
  - Rhabdomyolysis [Recovering/Resolving]
  - Oedema peripheral [Recovering/Resolving]
  - Nail discolouration [Recovering/Resolving]
